FAERS Safety Report 14290354 (Version 1)
Quarter: 2017Q4

REPORT INFORMATION
  Report Type: Spontaneous
  Country: ES (occurrence: ES)
  Receive Date: 20171215
  Receipt Date: 20171215
  Transmission Date: 20180321
  Serious: Yes (Hospitalization)
  Sender: FDA-Public Use
  Company Number: ES-JNJFOC-20171213264

PATIENT
  Age: 57 Year

DRUGS (6)
  1. ETOPOSIDE. [Interacting]
     Active Substance: ETOPOSIDE
     Indication: LYMPHOMA
     Route: 042
     Dates: start: 20161219
  2. METILPREDNISOLONE [Interacting]
     Active Substance: METHYLPREDNISOLONE
     Indication: LYMPHOMA
     Route: 042
     Dates: start: 20161219
  3. CYCLOPHOSPHAMIDE. [Interacting]
     Active Substance: CYCLOPHOSPHAMIDE
     Indication: LYMPHOMA
     Route: 042
     Dates: start: 20161219
  4. DOXORUBICIN [Suspect]
     Active Substance: DOXORUBICIN
     Indication: LYMPHOMA
     Route: 042
     Dates: start: 20161219
  5. VINCRISTINE SULFATE. [Interacting]
     Active Substance: VINCRISTINE SULFATE
     Indication: LYMPHOMA
     Route: 042
     Dates: start: 20161219
  6. BORTEZOMIB [Suspect]
     Active Substance: BORTEZOMIB
     Indication: LYMPHOMA
     Route: 042
     Dates: start: 20161219

REACTIONS (2)
  - Drug interaction [Unknown]
  - Influenza [Recovered/Resolved]

NARRATIVE: CASE EVENT DATE: 20161230
